FAERS Safety Report 21744419 (Version 2)
Quarter: 2023Q1

REPORT INFORMATION
  Report Type: Spontaneous
  Country: JP (occurrence: JP)
  Receive Date: 20221218
  Receipt Date: 20230120
  Transmission Date: 20230417
  Serious: Yes (Other)
  Sender: FDA-Public Use
  Company Number: JP-002147023-NVSJ2022JP275972

PATIENT
  Sex: Male
  Weight: 111 kg

DRUGS (3)
  1. VALSARTAN [Suspect]
     Active Substance: VALSARTAN
     Indication: Cardiac failure
     Dosage: 80 MG
     Route: 065
  2. CARVEDILOL [Concomitant]
     Active Substance: CARVEDILOL
     Indication: Product used for unknown indication
     Dosage: 10 MG
     Route: 065
  3. SPIRONOLACTONE [Concomitant]
     Active Substance: SPIRONOLACTONE
     Indication: Product used for unknown indication
     Dosage: 25 MG
     Route: 065

REACTIONS (10)
  - Cardiac failure [Recovering/Resolving]
  - Dyspnoea exertional [Unknown]
  - Chest discomfort [Unknown]
  - Heart sounds abnormal [Unknown]
  - Jugular vein distension [Unknown]
  - Cardiomyopathy [Unknown]
  - Body mass index increased [Unknown]
  - Blood pressure increased [Unknown]
  - Left ventricular dysfunction [Unknown]
  - Therapeutic product effect incomplete [Recovered/Resolved]

NARRATIVE: CASE EVENT DATE: 20211201
